FAERS Safety Report 23911299 (Version 1)
Quarter: 2024Q2

REPORT INFORMATION
  Report Type: Spontaneous
  Country: US (occurrence: None)
  Receive Date: 20240528
  Receipt Date: 20240528
  Transmission Date: 20240716
  Serious: Yes (Other)
  Sender: FDA-Public Use
  Company Number: None

PATIENT
  Age: 78 Year
  Sex: Male

DRUGS (1)
  1. LENALIDOMIDE [Suspect]
     Active Substance: LENALIDOMIDE
     Indication: Plasma cell myeloma
     Dosage: FREQUENCY : DAILY;?

REACTIONS (5)
  - Gastrointestinal infection [None]
  - Intentional dose omission [None]
  - Food contamination [None]
  - Campylobacter infection [None]
  - Cryptosporidiosis infection [None]

NARRATIVE: CASE EVENT DATE: 20240514
